FAERS Safety Report 8426790-9 (Version None)
Quarter: 2012Q2

REPORT INFORMATION
  Report Type: 
  Country: None (occurrence: None)
  Receive Date: 20120611
  Receipt Date: 20120607
  Transmission Date: 20120825
  Serious: Yes (Hospitalization, Disabling, Other)
  Sender: FDA-Public Use
  Company Number: PHHY2012AU043988

PATIENT
  Sex: Female

DRUGS (6)
  1. VASOCARDOL [Concomitant]
     Indication: HYPERTENSION
     Dosage: 300 MG (240 MG IN MORNING AND 60 MG IN MIDDAY)
     Route: 048
  2. VITAMIN D [Concomitant]
     Dosage: UNK UKN, UNK
     Route: 048
  3. GILENYA [Suspect]
     Indication: MULTIPLE SCLEROSIS
     Dosage: 0.5 MG, DAILY
     Route: 048
     Dates: start: 20110831
  4. CALCIUM [Concomitant]
     Dosage: UNK UKN, UNK
     Route: 048
  5. MAGNESIUM [Concomitant]
     Dosage: UNK UKN, UNK
  6. LIVATONE [Concomitant]
     Dosage: UNK UKN, UNK

REACTIONS (2)
  - RECTAL HAEMORRHAGE [None]
  - ESCHERICHIA TEST POSITIVE [None]
